FAERS Safety Report 5481992-9 (Version None)
Quarter: 2007Q4

REPORT INFORMATION
  Report Type: 
  Country: None (occurrence: None)
  Receive Date: 20071005
  Receipt Date: 20070921
  Transmission Date: 20080405
  Serious: Yes (Hospitalization)
  Sender: FDA-Public Use
  Company Number: 238115K07USA

PATIENT
  Age: 78 Year
  Sex: Male

DRUGS (1)
  1. REBIF [Suspect]
     Indication: MULTIPLE SCLEROSIS
     Dosage: 44 MCG, 3 IN 1 WEEKS, SUBUCTANEOUS
     Route: 058
     Dates: start: 20030812

REACTIONS (7)
  - ASTHENIA [None]
  - DEHYDRATION [None]
  - INJECTION SITE CELLULITIS [None]
  - INJECTION SITE ERYTHEMA [None]
  - MALAISE [None]
  - SCAR [None]
  - SKIN DISCOLOURATION [None]
